FAERS Safety Report 13749081 (Version 1)
Quarter: 2017Q3

REPORT INFORMATION
  Report Type: Spontaneous
  Country: US (occurrence: US)
  Receive Date: 20170713
  Receipt Date: 20170713
  Transmission Date: 20171127
  Serious: Yes (Hospitalization)
  Sender: FDA-Public Use
  Company Number: None

PATIENT
  Age: 56 Year
  Sex: Female
  Weight: 59.5 kg

DRUGS (1)
  1. PAZOPANIB (GW786034) [Suspect]
     Active Substance: PAZOPANIB
     Dates: end: 20170708

REACTIONS (5)
  - Cholelithiasis [None]
  - Pruritus [None]
  - Therapy cessation [None]
  - Jaundice cholestatic [None]
  - Disease progression [None]

NARRATIVE: CASE EVENT DATE: 20170707
